FAERS Safety Report 5288656-5 (Version None)
Quarter: 2007Q2

REPORT INFORMATION
  Report Type: 
  Country: None (occurrence: None)
  Receive Date: 20070405
  Receipt Date: 20070326
  Transmission Date: 20071010
  Serious: Yes (Disabling, Other)
  Sender: FDA-Public Use
  Company Number: JP-SHR-JP-2007-004119

PATIENT
  Age: 41 Year
  Sex: Female
  Weight: 43.8 kg

DRUGS (9)
  1. BETASERON [Suspect]
     Indication: RELAPSING-REMITTING MULTIPLE SCLEROSIS
     Dosage: 4 MIU, EVERY 2D
     Route: 058
     Dates: start: 20031111, end: 20031115
  2. BETASERON [Suspect]
     Dosage: 8 MIU, EVERY 2D
     Route: 058
     Dates: start: 20031117, end: 20031203
  3. CALCIUM LACTATE [Concomitant]
     Dosage: 1 G, 2X/DAY
     Route: 048
  4. ONE-ALPHA [Concomitant]
     Dosage: .5 A?G, 1X/DAY
     Route: 048
  5. LEXOTAN [Concomitant]
     Dosage: 2 MG, 1X/DAY
     Route: 048
  6. GASTER D [Concomitant]
     Dosage: 20 MG, 2X/DAY
     Route: 048
  7. MALFA [Concomitant]
     Dosage: 10 ML, 4X/DAY
     Route: 048
  8. PURSENNID                               /SCH/ [Concomitant]
     Dosage: 24 MG, 1X/DAY
     Route: 048
  9. LENDORMIN [Concomitant]
     Dosage: .25 MG, AS REQ'D
     Route: 048

REACTIONS (7)
  - ANORECTAL DISORDER [None]
  - BLADDER DISORDER [None]
  - CSF CELL COUNT INCREASED [None]
  - HEADACHE [None]
  - MULTIPLE SCLEROSIS [None]
  - PYREXIA [None]
  - SPASTIC PARAPLEGIA [None]
